FAERS Safety Report 4496080-8 (Version None)
Quarter: 2004Q4

REPORT INFORMATION
  Report Type: 
  Country: None (occurrence: None)
  Receive Date: 20041108
  Receipt Date: 20041020
  Transmission Date: 20050328
  Serious: Yes (Life-Threatening, Hospitalization, Disabling)
  Sender: FDA-Public Use
  Company Number: US-MERCK-0410USA03163

PATIENT
  Age: 80 Year
  Sex: Male

DRUGS (6)
  1. VIOXX [Suspect]
     Indication: ARTHRITIS
     Route: 048
     Dates: start: 20000301, end: 20040201
  2. PREVACID [Concomitant]
     Route: 065
  3. VASOTEC [Concomitant]
     Route: 048
  4. COVERA-HS [Concomitant]
     Route: 065
  5. DIURETIC (UNSPECIFIED) [Concomitant]
     Route: 065
  6. PROCARDIA XL [Concomitant]
     Route: 065

REACTIONS (3)
  - ADVERSE EVENT [None]
  - CEREBROVASCULAR ACCIDENT [None]
  - HYPERHIDROSIS [None]
